FAERS Safety Report 7259268-9 (Version None)
Quarter: 2011Q1

REPORT INFORMATION
  Report Type: 
  Country: None (occurrence: None)
  Receive Date: 20110129
  Receipt Date: 20100729
  Transmission Date: 20110831
  Serious: No
  Sender: FDA-Public Use
  Company Number: US-ABBOTT-10P-163-0660820-00

PATIENT
  Age: 59 Year
  Sex: Male

DRUGS (6)
  1. PROBIOTICS [Concomitant]
     Indication: PRODUCT USED FOR UNKNOWN INDICATION
  2. ANTIFUNGAL CREAM TO LIP [Concomitant]
     Indication: PRODUCT USED FOR UNKNOWN INDICATION
  3. PREDISONE [Concomitant]
     Indication: CROHN'S DISEASE
  4. HUMIRA [Suspect]
     Indication: CROHN'S DISEASE
     Dates: start: 20100725
  5. MULTI-VITAMINS [Concomitant]
     Indication: PRODUCT USED FOR UNKNOWN INDICATION
  6. CALCIUM [Concomitant]
     Indication: PRODUCT USED FOR UNKNOWN INDICATION

REACTIONS (1)
  - CONTUSION [None]
